FAERS Safety Report 8500040-7 (Version None)
Quarter: 2012Q3

REPORT INFORMATION
  Report Type: 
  Country: None (occurrence: None)
  Receive Date: 20120703
  Receipt Date: 20120703
  Transmission Date: 20120928
  Serious: Yes (Hospitalization)
  Sender: FDA-Public Use
  Company Number: None

PATIENT
  Age: 65 Year
  Sex: Male
  Weight: 86.1834 kg

DRUGS (1)
  1. ENBREL [Suspect]
     Indication: ABSCESS INTESTINAL
     Dosage: WEEKLY 50 MG SC
     Route: 058
     Dates: start: 20110501, end: 20110801

REACTIONS (1)
  - ABSCESS INTESTINAL [None]
